FAERS Safety Report 17860186 (Version 1)
Quarter: 2020Q2

REPORT INFORMATION
  Report Type: Spontaneous
  Country: US (occurrence: US)
  Receive Date: 20200604
  Receipt Date: 20200604
  Transmission Date: 20200714
  Serious: Yes (Other)
  Sender: FDA-Public Use
  Company Number: US-PACIRA-202000186

PATIENT

DRUGS (5)
  1. KETOROLAC [Concomitant]
     Active Substance: KETOROLAC TROMETHAMINE
     Indication: PROCEDURAL PAIN
     Dosage: 15 MG EVERY 6 HOURS FOR 48 HOURS
     Route: 042
  2. PERCOCET [Concomitant]
     Active Substance: ACETAMINOPHEN\OXYCODONE HYDROCHLORIDE
     Indication: PAIN MANAGEMENT
     Dosage: EVERY 6 HOURS
     Route: 048
  3. MORPHINE [Concomitant]
     Active Substance: MORPHINE
     Indication: POSTOPERATIVE ANALGESIA
     Dosage: UNKNOWN; PER PCA
     Route: 042
  4. EXPAREL [Suspect]
     Active Substance: BUPIVACAINE
     Indication: POSTOPERATIVE ANALGESIA
     Dosage: 1 ML AT EACH INTERCOSTAL SPACE
  5. DILAUDID [Concomitant]
     Active Substance: HYDROMORPHONE HYDROCHLORIDE
     Indication: POSTOPERATIVE ANALGESIA
     Dosage: UNKNOWN; PER PCA
     Route: 042

REACTIONS (6)
  - Ileus [Unknown]
  - Atrial fibrillation [Unknown]
  - Acute kidney injury [Unknown]
  - Urinary retention [Unknown]
  - Off label use [Unknown]
  - Pulmonary air leakage [Unknown]
